FAERS Safety Report 6539976-5 (Version None)
Quarter: 2010Q1

REPORT INFORMATION
  Report Type: 
  Country: None (occurrence: None)
  Receive Date: 20100115
  Receipt Date: 20100108
  Transmission Date: 20100710
  Serious: Yes (Death)
  Sender: FDA-Public Use
  Company Number: PHHY2009AT12130

PATIENT
  Sex: Female

DRUGS (2)
  1. LAMPRENE [Suspect]
     Indication: OSTEONECROSIS
     Dosage: UNK
     Dates: start: 19980101
  2. LAMPRENE [Suspect]
     Indication: MELKERSSON-ROSENTHAL SYNDROME

REACTIONS (29)
  - ABDOMINAL PAIN [None]
  - ABSCESS [None]
  - ALVEOLITIS FIBROSING [None]
  - ATRIAL FIBRILLATION [None]
  - ATRIAL FLUTTER [None]
  - CARDIOPULMONARY FAILURE [None]
  - CEREBRAL CALCIFICATION [None]
  - CHOLECYSTITIS ACUTE [None]
  - CONGESTIVE CARDIOMYOPATHY [None]
  - COR PULMONALE CHRONIC [None]
  - DEPRESSION [None]
  - EMPYEMA [None]
  - ESSENTIAL HYPERTENSION [None]
  - GANGRENE [None]
  - HYPERCHOLESTEROLAEMIA [None]
  - HYPERLIPIDAEMIA [None]
  - LEFT VENTRICULAR FAILURE [None]
  - LOW DENSITY LIPOPROTEIN INCREASED [None]
  - MELKERSSON-ROSENTHAL SYNDROME [None]
  - PERITONITIS [None]
  - PNEUMONIA [None]
  - PRODUCT DEPOSIT [None]
  - PULMONARY EMBOLISM [None]
  - PULMONARY HAEMOSIDEROSIS [None]
  - PULMONARY HYPERTENSION [None]
  - SEPSIS [None]
  - SEPTIC SHOCK [None]
  - VASCULAR ENCEPHALOPATHY [None]
  - VENOUS INSUFFICIENCY [None]
